FAERS Safety Report 8323373-6 (Version None)
Quarter: 2012Q2

REPORT INFORMATION
  Report Type: 
  Country: None (occurrence: None)
  Receive Date: 20120430
  Receipt Date: 20120424
  Transmission Date: 20120825
  Serious: Yes (Other)
  Sender: FDA-Public Use
  Company Number: US-MERCK-1204USA03609

PATIENT
  Age: 51 Year
  Sex: Female

DRUGS (6)
  1. REBIF [Suspect]
     Indication: MULTIPLE SCLEROSIS
     Route: 065
     Dates: start: 20110120
  2. BUPROPION HYDROCHLORIDE [Suspect]
     Indication: DEPRESSION
     Route: 065
     Dates: end: 20111101
  3. GABAPENTIN [Suspect]
     Dosage: 6 IN ONE DAY, 6 DF QD
     Route: 065
     Dates: end: 20111101
  4. DIAZEPAM [Suspect]
     Indication: MUSCLE SPASMS
     Route: 065
     Dates: end: 20111101
  5. ZOCOR [Suspect]
     Indication: BLOOD CHOLESTEROL INCREASED
     Route: 048
     Dates: end: 20111101
  6. AMPYRA [Suspect]
     Route: 048
     Dates: end: 20111101

REACTIONS (6)
  - MENTAL DISORDER [None]
  - SUICIDAL IDEATION [None]
  - EYE MOVEMENT DISORDER [None]
  - CONVULSION [None]
  - MOTOR DYSFUNCTION [None]
  - URINARY INCONTINENCE [None]
